FAERS Safety Report 5356472-1 (Version None)
Quarter: 2007Q2

REPORT INFORMATION
  Report Type: 
  Country: None (occurrence: None)
  Receive Date: 20070530
  Receipt Date: 20070103
  Transmission Date: 20071010
  Serious: Yes (Hospitalization, Other)
  Sender: FDA-Public Use
  Company Number: US200609004882

PATIENT
  Age: 62 Year
  Sex: Male
  Weight: 100.7 kg

DRUGS (5)
  1. ZYPREXA [Suspect]
     Indication: DEPRESSION
     Dosage: 15 MG, 25 MG, 35 MG, 35 MG
     Dates: start: 20020101, end: 20030101
  2. ZYPREXA [Suspect]
     Indication: DEPRESSION
     Dosage: 15 MG, 25 MG, 35 MG, 35 MG
     Dates: start: 20020101, end: 20040101
  3. ZYPREXA [Suspect]
     Indication: DEPRESSION
     Dosage: 15 MG, 25 MG, 35 MG, 35 MG
     Dates: start: 20020101, end: 20050101
  4. CARBAMAZEPINE [Concomitant]
  5. DIVALPROEX SODIUM [Concomitant]

REACTIONS (6)
  - BLOOD CHOLESTEROL [None]
  - DIABETES MELLITUS [None]
  - DIABETIC COMA [None]
  - DIABETIC KETOACIDOSIS [None]
  - KETONURIA [None]
  - METABOLIC DISORDER [None]
